FAERS Safety Report 7146870-8 (Version None)
Quarter: 2010Q4

REPORT INFORMATION
  Report Type: 
  Country: None (occurrence: None)
  Receive Date: 20101209
  Receipt Date: 20100802
  Transmission Date: 20110411
  Serious: Yes (Death, Hospitalization, Disabling)
  Sender: FDA-Public Use
  Company Number: US-ACTELION-A-NJ2010-36546

PATIENT
  Sex: Female

DRUGS (22)
  1. BOSENTAN TABLET 125 MG US [Suspect]
     Indication: PULMONARY ARTERIAL HYPERTENSION
     Dosage: 125 MG, BID
     Route: 048
     Dates: start: 20091117, end: 20100423
  2. BOSENTAN TABLET 125 MG US [Suspect]
     Dosage: 62.5 MG, BID
     Route: 048
     Dates: start: 20090611, end: 20091116
  3. VENTAVIS [Suspect]
     Indication: PULMONARY ARTERIAL HYPERTENSION
     Dosage: 5 UG, UNK
     Route: 055
     Dates: end: 20100505
  4. VENTAVIS [Suspect]
     Dosage: 2.5 UG, UNK
     Route: 055
     Dates: start: 20100204
  5. ZOCOR [Concomitant]
  6. HYDRALAZINE [Concomitant]
  7. PROTONIX [Concomitant]
  8. GLIPIZIDE [Concomitant]
  9. SILDENAFIL [Concomitant]
  10. CIPROFLOXACIN [Concomitant]
  11. DOCUSATE [Concomitant]
  12. GABAPENTIN [Concomitant]
  13. APAP TAB [Concomitant]
  14. TRAMADOL [Concomitant]
  15. ATROVENT [Concomitant]
  16. LATANOPROST [Concomitant]
  17. ALBUTEROL [Concomitant]
  18. DIGOXIN [Concomitant]
  19. DARBEPOETIN ALFA [Concomitant]
  20. NYSTATIN [Concomitant]
  21. FONDAPARINUX SODIUM [Concomitant]
  22. SEVELAMER [Concomitant]

REACTIONS (9)
  - CARDIAC FAILURE ACUTE [None]
  - DEATH [None]
  - ENDOTRACHEAL INTUBATION [None]
  - HAEMODIALYSIS [None]
  - PNEUMONIA [None]
  - RENAL FAILURE [None]
  - RESPIRATORY FAILURE [None]
  - TORSADE DE POINTES [None]
  - URINARY TRACT INFECTION [None]
